FAERS Safety Report 7439395-3 (Version None)
Quarter: 2011Q2

REPORT INFORMATION
  Report Type: 
  Country: None (occurrence: None)
  Receive Date: 20110427
  Receipt Date: 20110418
  Transmission Date: 20111010
  Serious: Yes (Other)
  Sender: FDA-Public Use
  Company Number: US-ASTRAZENECA-2007UW05026

PATIENT
  Sex: Female
  Weight: 117.9 kg

DRUGS (5)
  1. SEROQUEL [Suspect]
     Indication: ANXIETY
     Route: 048
     Dates: start: 20040216, end: 20060306
  2. EFFEXOR XR [Concomitant]
     Dates: start: 20060501, end: 20061201
  3. ALPRAZOLAM [Concomitant]
     Dosage: 1OR 2 A DAY
     Dates: start: 20060501
  4. SEROQUEL [Suspect]
     Indication: DEPRESSION
     Route: 048
     Dates: start: 20040216, end: 20060306
  5. PROZAC [Concomitant]
     Dates: start: 19950101

REACTIONS (4)
  - TYPE 2 DIABETES MELLITUS [None]
  - SLEEP APNOEA SYNDROME [None]
  - NON-HODGKIN'S LYMPHOMA [None]
  - ASTHMA [None]
